FAERS Safety Report 8248128-2 (Version None)
Quarter: 2012Q1

REPORT INFORMATION
  Report Type: 
  Country: None (occurrence: None)
  Receive Date: 20120330
  Receipt Date: 20120313
  Transmission Date: 20120608
  Serious: No
  Sender: FDA-Public Use
  Company Number: US-BAYER-2012-024965

PATIENT
  Sex: Female

DRUGS (1)
  1. CLIMARA PRO [Suspect]
     Indication: HORMONE REPLACEMENT THERAPY
     Dosage: UNK
     Dates: start: 20100101

REACTIONS (4)
  - DEPRESSED MOOD [None]
  - HOT FLUSH [None]
  - HEADACHE [None]
  - ABDOMINAL DISTENSION [None]
